FAERS Safety Report 18957701 (Version 1)
Quarter: 2021Q1

REPORT INFORMATION
  Report Type: Spontaneous
  Country: US (occurrence: US)
  Receive Date: 20210302
  Receipt Date: 20210302
  Transmission Date: 20210420
  Serious: Yes (Other)
  Sender: FDA-Public Use
  Company Number: US-PFIZER INC-2021208705

PATIENT
  Age: 40 Year
  Sex: Female

DRUGS (5)
  1. TRIMEPRAZINE [Suspect]
     Active Substance: TRIMEPRAZINE
     Indication: INTRACRANIAL ANEURYSM
     Dosage: UNK
  2. KANTREX [Suspect]
     Active Substance: KANAMYCIN SULFATE
     Indication: INTRACRANIAL ANEURYSM
     Dosage: UNK
  3. TEMARIL [Suspect]
     Active Substance: TRIMEPRAZINE TARTRATE
     Indication: INTRACRANIAL ANEURYSM
     Dosage: UNK
  4. DILANTIN [Suspect]
     Active Substance: PHENYTOIN
     Indication: INTRACRANIAL ANEURYSM
     Dosage: 300 MG, DAILY
     Dates: end: 19720526
  5. GANTRISIN [SULFAFURAZOLE] [Suspect]
     Active Substance: SULFISOXAZOLE
     Indication: INTRACRANIAL ANEURYSM
     Dosage: UNK

REACTIONS (1)
  - Aplasia pure red cell [Recovered/Resolved]
